FAERS Safety Report 5285463-4 (Version None)
Quarter: 2007Q1

REPORT INFORMATION
  Report Type: 
  Country: None (occurrence: None)
  Receive Date: 20070328
  Receipt Date: 20070319
  Transmission Date: 20070707
  Serious: Yes (Life-Threatening, Hospitalization)
  Sender: FDA-Public Use
  Company Number: OXYA20070001

PATIENT
  Age: 41 Year
  Sex: Male

DRUGS (4)
  1. OXYCODONE AND ACETAMINOPHEN [Suspect]
     Indication: PAIN
     Dosage: 1-2 TABS Q4-6H PRN, PER ORAL
     Route: 048
  2. ANTIBIOTICS [Concomitant]
  3. HYDROMORPHONE HCL [Concomitant]
  4. COLCHICINE [Concomitant]

REACTIONS (17)
  - APNOEA [None]
  - CATHETER RELATED COMPLICATION [None]
  - GOUT [None]
  - HYPERHIDROSIS [None]
  - HYPOTENSION [None]
  - HYPOVENTILATION [None]
  - LETHARGY [None]
  - LOSS OF CONSCIOUSNESS [None]
  - MIOSIS [None]
  - OSTEOMYELITIS [None]
  - PUPILLARY REFLEX IMPAIRED [None]
  - PYREXIA [None]
  - RESPIRATORY DEPRESSION [None]
  - SINUS ARREST [None]
  - SLEEP APNOEA SYNDROME [None]
  - SOMNOLENCE [None]
  - STUPOR [None]
